FAERS Safety Report 10513208 (Version 2)
Quarter: 2017Q2

REPORT INFORMATION
  Report Type: Spontaneous
  Country: FR (occurrence: FR)
  Receive Date: 20141013
  Receipt Date: 20170512
  Transmission Date: 20170829
  Serious: Yes (Hospitalization, Other)
  Sender: FDA-Public Use
  Company Number: FR-JNJFOC-20141000726

PATIENT
  Age: 81 Year
  Sex: Male

DRUGS (7)
  1. CEFTRIAXONE. [Concomitant]
     Active Substance: CEFTRIAXONE
     Dosage: 1 INJECTION IN THE EVENING.
     Route: 065
  2. CIFLOX (CIPROFLOXACINE) [Concomitant]
     Active Substance: CIPROFLOXACIN
     Dosage: 1 INJECTION IN THE MORNING AND ONE IN THE EVENING.
     Route: 065
  3. ZYTIGA [Suspect]
     Active Substance: ABIRATERONE ACETATE
     Indication: PROSTATE CANCER METASTATIC
     Dosage: IN THE MORNING FOR A LONG TIME.
     Route: 048
  4. OXYNORM [Concomitant]
     Active Substance: OXYCODONE HYDROCHLORIDE
     Route: 065
  5. GLUCOSE [Concomitant]
     Active Substance: DEXTROSE
     Route: 065
  6. PARACETAMOL [Concomitant]
     Active Substance: ACETAMINOPHEN
     Dosage: IF REQUIRED.
     Route: 065
  7. BICARBONATE [Concomitant]
     Active Substance: BICARBONATE ION
     Dosage: MOUTHWASH.
     Route: 065

REACTIONS (4)
  - Product use complaint [Recovering/Resolving]
  - Inflammation [Not Recovered/Not Resolved]
  - Wrong technique in product usage process [Unknown]
  - Angioedema [Recovering/Resolving]

NARRATIVE: CASE EVENT DATE: 20140930
